FAERS Safety Report 7590090-X (Version None)
Quarter: 2011Q3

REPORT INFORMATION
  Report Type: 
  Country: None (occurrence: None)
  Receive Date: 20110705
  Receipt Date: 20110627
  Transmission Date: 20111222
  Serious: Yes (Hospitalization, Other)
  Sender: FDA-Public Use
  Company Number: B0725670A

PATIENT
  Sex: Female
  Weight: 80 kg

DRUGS (1)
  1. PROPAFENONE HCL [Suspect]
     Indication: ATRIAL FIBRILLATION
     Dosage: 150MG TWICE PER DAY
     Route: 048
     Dates: start: 20110301, end: 20110520

REACTIONS (3)
  - DYSPEPSIA [None]
  - CHOLESTASIS [None]
  - GASTRIC CANCER [None]
